FAERS Safety Report 11737532 (Version 1)
Quarter: 2015Q4

REPORT INFORMATION
  Report Type: Spontaneous
  Country: US (occurrence: US)
  Receive Date: 20151110
  Receipt Date: 20151110
  Transmission Date: 20160304
  Serious: No
  Sender: FDA-Public Use
  Company Number: US-ELI_LILLY_AND_COMPANY-US201206007396

PATIENT
  Sex: Female

DRUGS (1)
  1. FORTEO [Suspect]
     Active Substance: TERIPARATIDE
     Indication: OSTEOPOROSIS
     Dosage: 20 UG, QD
     Route: 065
     Dates: start: 20110223, end: 20120605

REACTIONS (10)
  - Urinary tract infection [Unknown]
  - Malaise [Unknown]
  - Peripheral swelling [Unknown]
  - Arthralgia [Unknown]
  - Night sweats [Unknown]
  - Chondrocalcinosis pyrophosphate [Unknown]
  - Pain in extremity [Unknown]
  - Pyrexia [Unknown]
  - Joint swelling [Unknown]
  - Hypercalcaemia [Unknown]
